FAERS Safety Report 20775807 (Version 1)
Quarter: 2022Q2

REPORT INFORMATION
  Report Type: Spontaneous
  Country: US (occurrence: US)
  Receive Date: 20220502
  Receipt Date: 20220502
  Transmission Date: 20220721
  Serious: No
  Sender: FDA-Public Use
  Company Number: US-PFIZER INC-202101030029

PATIENT
  Age: 23 Year
  Sex: Female
  Weight: 61.23 kg

DRUGS (2)
  1. PRISTIQ EXTENDED-RELEASE [Suspect]
     Active Substance: DESVENLAFAXINE SUCCINATE
     Dosage: 25 MG
     Dates: start: 20210807
  2. BUPROPION [Suspect]
     Active Substance: BUPROPION
     Dosage: UNK

REACTIONS (2)
  - Somnolence [Unknown]
  - Mood swings [Unknown]
